FAERS Safety Report 4590805-9 (Version None)
Quarter: 2005Q1

REPORT INFORMATION
  Report Type: 
  Country: None (occurrence: None)
  Receive Date: 20050225
  Receipt Date: 20050210
  Transmission Date: 20050727
  Serious: Yes (Death, Other)
  Sender: FDA-Public Use
  Company Number: 200510515JP

PATIENT
  Age: 84 Year
  Sex: Male

DRUGS (2)
  1. DOCETAXEL [Suspect]
     Indication: METASTATIC NEOPLASM
     Route: 041
     Dates: start: 20030902, end: 20030902
  2. METHYLPREDNISOLONE [Concomitant]
     Indication: ACUTE RESPIRATORY DISTRESS SYNDROME
     Dates: start: 20030922

REACTIONS (4)
  - ACUTE RESPIRATORY DISTRESS SYNDROME [None]
  - METASTASES TO LUNG [None]
  - MULTI-ORGAN FAILURE [None]
  - PLEURAL EFFUSION [None]
